FAERS Safety Report 5194414-2 (Version None)
Quarter: 2006Q4

REPORT INFORMATION
  Report Type: 
  Country: None (occurrence: None)
  Receive Date: 20061222
  Receipt Date: 20061214
  Transmission Date: 20070319
  Serious: Yes (Hospitalization)
  Sender: FDA-Public Use
  Company Number: 230267M06USA

PATIENT
  Age: 23 Year
  Sex: Female

DRUGS (8)
  1. REBIF [Suspect]
     Indication: MULTIPLE SCLEROSIS
     Dosage: 44 MCG, 3 IN 1 WEEKS, SUBCUTANEOUS
     Route: 058
     Dates: start: 20060116, end: 20061002
  2. BACLOFEN [Concomitant]
  3. PROVIGIL [Concomitant]
  4. NEURONTIN [Concomitant]
  5. QUININE SULFATE [Concomitant]
  6. CYMBALTA [Concomitant]
  7. DEMULEN/ZOVIA 1/35 (CYCLOGESTERIN) [Concomitant]
  8. NITROFURANTOIN [Concomitant]

REACTIONS (3)
  - CONTUSION [None]
  - EPISTAXIS [None]
  - IDIOPATHIC THROMBOCYTOPENIC PURPURA [None]
